FAERS Safety Report 7406819-7 (Version None)
Quarter: 2011Q2

REPORT INFORMATION
  Report Type: 
  Country: None (occurrence: None)
  Receive Date: 20110411
  Receipt Date: 20110404
  Transmission Date: 20111010
  Serious: Yes (Other)
  Sender: FDA-Public Use
  Company Number: JP-PFIZER INC-2011074449

PATIENT
  Age: 76 Year
  Sex: Male

DRUGS (1)
  1. LYRICA [Suspect]
     Dosage: 75MG DAILY
     Dates: start: 20101201

REACTIONS (3)
  - BENIGN PROSTATIC HYPERPLASIA [None]
  - BLADDER DILATATION [None]
  - URINARY RETENTION [None]
